FAERS Safety Report 9194443 (Version 3)
Quarter: 2013Q3

REPORT INFORMATION
  Report Type: Spontaneous
  Country: JP (occurrence: JP)
  Receive Date: 20130327
  Receipt Date: 20130718
  Transmission Date: 20140515
  Serious: Yes (Other)
  Sender: FDA-Public Use
  Company Number: JP-OTSUKA-JP-2013-10722

PATIENT
  Age: 61 Year
  Sex: Female
  Weight: 56 kg

DRUGS (18)
  1. SAMSCA [Suspect]
     Indication: FLUID RETENTION
     Dosage: 7.5 MG MILLIGRAM(S), DAILY DOSE
     Route: 048
     Dates: start: 20121011, end: 20121016
  2. SAMSCA [Suspect]
     Dosage: 15 MG MILLIGRAM(S), QD
     Route: 048
     Dates: start: 20121017, end: 20121109
  3. RIVOTRIL [Concomitant]
     Route: 048
  4. LIPITOR [Concomitant]
     Route: 048
  5. ALDACTONE A [Concomitant]
     Route: 048
  6. TOWARAT [Concomitant]
     Dosage: UNK
     Route: 048
     Dates: start: 20111007
  7. VOGLIBOSE [Concomitant]
     Dosage: 0.3 MG MILLIGRAM(S), TID
     Route: 048
     Dates: start: 20111018
  8. FUROSEMIDE [Concomitant]
     Dosage: 20 MG MILLIGRAM(S), BID
     Route: 048
     Dates: start: 20111029, end: 20120426
  9. FUROSEMIDE [Concomitant]
     Dosage: 40 MG MILLIGRAM(S), TID
     Route: 048
     Dates: start: 20120427
  10. FUROSEMIDE [Concomitant]
     Dosage: 20 MG MILLIGRAM(S), BID
     Route: 048
     Dates: start: 20120706, end: 20130425
  11. KAZMARIN [Concomitant]
     Dosage: 8 MG MILLIGRAM(S), QD
     Route: 048
     Dates: start: 20111109, end: 20120306
  12. KAZMARIN [Concomitant]
     Dosage: 8 MG MILLIGRAM(S), QD
     Route: 048
     Dates: start: 20120406
  13. MICARDIS [Concomitant]
     Dosage: 40 MG MILLIGRAM(S), BID
     Route: 048
     Dates: start: 20111115
  14. SPIRONOLACTONE [Concomitant]
     Dosage: 25 MG MILLIGRAM(S), QD
     Route: 048
     Dates: start: 20120525, end: 20130218
  15. SPIRONOLACTONE [Concomitant]
     Dosage: 25 MG MILLIGRAM(S), QD
     Route: 048
     Dates: start: 20130606
  16. TOWAMIN [Concomitant]
     Dosage: 25 MG MILLIGRAM(S), QD
     Route: 048
     Dates: start: 20120803
  17. ARTIST [Concomitant]
     Dosage: 10 MG MILLIGRAM(S), QD
     Route: 048
     Dates: start: 20121004
  18. NESINA [Concomitant]
     Dosage: 6.25 MG MILLIGRAM(S), QD
     Route: 048
     Dates: start: 20121017

REACTIONS (2)
  - Sudden hearing loss [Recovered/Resolved with Sequelae]
  - Dizziness [Recovered/Resolved]
